FAERS Safety Report 4824783-1 (Version None)
Quarter: 2005Q4

REPORT INFORMATION
  Report Type: 
  Country: None (occurrence: None)
  Receive Date: 20051108
  Receipt Date: 20051028
  Transmission Date: 20060501
  Serious: Yes (Hospitalization)
  Sender: FDA-Public Use
  Company Number: EWC051046973

PATIENT
  Age: 81 Year
  Sex: Female

DRUGS (2)
  1. OLANZAPINE [Suspect]
     Indication: ADJUSTMENT DISORDER
     Dosage: 2.5 MG DAY
     Dates: start: 20020601, end: 20021227
  2. EDRONAX (REBOXETINE) [Concomitant]

REACTIONS (4)
  - CONDITION AGGRAVATED [None]
  - DEPRESSED MOOD [None]
  - INAPPROPRIATE ANTIDIURETIC HORMONE SECRETION [None]
  - WEIGHT DECREASED [None]
